FAERS Safety Report 9863998 (Version 1)
Quarter: 2014Q1

REPORT INFORMATION
  Report Type: Report from Study
  Country: US (occurrence: US)
  Receive Date: 20140203
  Receipt Date: 20140203
  Transmission Date: 20141002
  Serious: Yes (Other)
  Sender: FDA-Public Use
  Company Number: US-ABBVIE-14P-163-1195095-00

PATIENT
  Age: 70 Year
  Sex: Female

DRUGS (9)
  1. HUMIRA [Suspect]
     Indication: CROHN^S DISEASE
     Dates: start: 20131010
  2. HYDROCHLOORTHIAZIDE [Concomitant]
     Indication: BLOOD PRESSURE
  3. LISINOPRIL [Concomitant]
     Indication: BLOOD PRESSURE
  4. ASACOL [Concomitant]
     Indication: CROHN^S DISEASE
  5. HYOSCYAMINE [Concomitant]
     Indication: DIARRHOEA
  6. HYOSCYAMINE [Concomitant]
     Indication: MUSCLE SPASMS
  7. PRILOSEC [Concomitant]
     Indication: GASTRIC DISORDER
  8. ALBUTEROL [Concomitant]
     Indication: PRODUCT USED FOR UNKNOWN INDICATION
     Dosage: INHALER
  9. NEBULISER [Concomitant]
     Indication: PRODUCT USED FOR UNKNOWN INDICATION

REACTIONS (2)
  - Haemorrhoids [Not Recovered/Not Resolved]
  - Drug dose omission [Unknown]
